FAERS Safety Report 11032075 (Version 3)
Quarter: 2015Q2

REPORT INFORMATION
  Report Type: Spontaneous
  Country: US (occurrence: None)
  Receive Date: 20150414
  Receipt Date: 20150514
  Transmission Date: 20150821
  Serious: Yes (Hospitalization)
  Sender: FDA-Public Use
  Company Number: PT15-094-AE

PATIENT
  Age: 69 Year
  Sex: Female
  Weight: 72.58 kg

DRUGS (2)
  1. FLECAINIDE ACETATE. [Suspect]
     Active Substance: FLECAINIDE ACETATE
     Indication: HYPERTENSION
     Dosage: 1 TAB BID ORAL
     Route: 048
     Dates: start: 20100714
  2. FLECAINIDE ACETATE. [Suspect]
     Active Substance: FLECAINIDE ACETATE
     Indication: HYPERTENSION
     Dosage: 1 TAB BID ORAL
     Route: 048
     Dates: start: 20100708, end: 20100715

REACTIONS (11)
  - Atrial fibrillation [None]
  - Arrhythmia [None]
  - Blood sodium decreased [None]
  - Pulmonary oedema [None]
  - Blood pressure increased [None]
  - Drug hypersensitivity [None]
  - Haematocrit decreased [None]
  - Atrial flutter [None]
  - Chest pain [None]
  - Cardiac failure congestive [None]
  - Palpitations [None]

NARRATIVE: CASE EVENT DATE: 2010
